FAERS Safety Report 16680358 (Version 3)
Quarter: 2019Q3

REPORT INFORMATION
  Report Type: Spontaneous
  Country: US (occurrence: US)
  Receive Date: 20190807
  Receipt Date: 20190919
  Transmission Date: 20191004
  Serious: Yes (Other)
  Sender: FDA-Public Use
  Company Number: US-ALLERGAN-1932386US

PATIENT
  Sex: Female

DRUGS (6)
  1. MEDROL [Interacting]
     Active Substance: METHYLPREDNISOLONE
     Indication: INFLUENZA
  2. RESTASIS [Suspect]
     Active Substance: CYCLOSPORINE
     Indication: DRY EYE
     Dosage: 2 GTT, BID
     Route: 047
     Dates: start: 201806, end: 201811
  3. RESTASIS [Interacting]
     Active Substance: CYCLOSPORINE
     Dosage: 2 GTT, BID
     Route: 047
     Dates: start: 2016
  4. CEPHALEXINE [Concomitant]
     Active Substance: CEPHALEXIN
     Indication: PRODUCT USED FOR UNKNOWN INDICATION
     Dosage: 4 DF, QD
     Dates: start: 20180115, end: 20180121
  5. LEVOTHYROXINE. [Concomitant]
     Active Substance: LEVOTHYROXINE
     Indication: HYPOTHYROIDISM
     Dosage: 25 ?G, QD
     Route: 048
     Dates: start: 201607
  6. MEDROL [Interacting]
     Active Substance: METHYLPREDNISOLONE
     Indication: COUGH
     Dosage: UNK
     Route: 065
     Dates: start: 20180114, end: 20180120

REACTIONS (4)
  - Cough [Recovered/Resolved]
  - Influenza [Recovered/Resolved]
  - Osteonecrosis [Not Recovered/Not Resolved]
  - Drug interaction [Unknown]

NARRATIVE: CASE EVENT DATE: 2018
